FAERS Safety Report 13444973 (Version 9)
Quarter: 2018Q2

REPORT INFORMATION
  Report Type: Report from Study
  Country: JP (occurrence: JP)
  Receive Date: 20170414
  Receipt Date: 20180620
  Transmission Date: 20180711
  Serious: Yes (Other)
  Sender: FDA-Public Use
  Company Number: JP-AMGEN-JPNCT2017035419

PATIENT
  Age: 67 Year
  Sex: Female
  Weight: 45.7 kg

DRUGS (12)
  1. CALCIUM LEVOFOLINATE [Suspect]
     Active Substance: LEVOLEUCOVORIN CALCIUM
     Indication: RECTAL CANCER
     Dosage: 275 MG, Q2WEEKS
     Route: 041
     Dates: start: 20161026, end: 20161109
  2. FLUOROURACIL. [Suspect]
     Active Substance: FLUOROURACIL
     Dosage: 3300 MG, Q2WK
     Route: 041
     Dates: start: 20161026, end: 20161109
  3. FLUOROURACIL. [Suspect]
     Active Substance: FLUOROURACIL
     Dosage: 3300 MG, Q2WEEKS
     Route: 041
     Dates: start: 20161207, end: 20170104
  4. CALCIUM LEVOFOLINATE [Suspect]
     Active Substance: LEVOLEUCOVORIN CALCIUM
     Dosage: 275 MG, Q2WEEKS
     Route: 041
     Dates: start: 20161207, end: 20170104
  5. DIFLUPREDNATE [Concomitant]
     Active Substance: DIFLUPREDNATE
     Indication: RASH
     Dosage: UNK, BID
     Route: 062
     Dates: start: 20161108
  6. ALCLOMETASONE DIPROPIONATE. [Concomitant]
     Active Substance: ALCLOMETASONE DIPROPIONATE
     Indication: RASH
     Dosage: UNK, BID
     Route: 062
     Dates: start: 20161108
  7. PANITUMUMAB [Suspect]
     Active Substance: PANITUMUMAB
     Indication: RECTAL CANCER
     Dosage: 250 MG, Q2WK
     Route: 041
     Dates: start: 20161026, end: 20161109
  8. FLUOROURACIL. [Suspect]
     Active Substance: FLUOROURACIL
     Indication: RECTAL CANCER
     Dosage: 550 MG, Q2WK
     Route: 040
     Dates: start: 20161026, end: 20161109
  9. PANITUMUMAB [Suspect]
     Active Substance: PANITUMUMAB
     Dosage: 250 MG, Q2WK
     Route: 041
     Dates: start: 20161207, end: 20170125
  10. OXALIPLATIN. [Suspect]
     Active Substance: OXALIPLATIN
     Indication: RECTAL CANCER
     Dosage: 110 MG, Q2WEEKS
     Route: 041
     Dates: start: 20161026, end: 20161109
  11. OXALIPLATIN. [Suspect]
     Active Substance: OXALIPLATIN
     Dosage: 110 MG, Q2WEEKS
     Route: 041
     Dates: start: 20161207, end: 20170104
  12. FLUOROURACIL. [Suspect]
     Active Substance: FLUOROURACIL
     Dosage: 550 MG, Q2WK
     Route: 040
     Dates: start: 20161207, end: 20170104

REACTIONS (21)
  - Mesenteric artery thrombosis [Recovered/Resolved]
  - Alanine aminotransferase increased [Recovered/Resolved]
  - Peripheral sensory neuropathy [Recovered/Resolved]
  - Neutrophil count decreased [Recovered/Resolved]
  - Vomiting [Recovered/Resolved]
  - Alopecia [Recovered/Resolved]
  - Skin hyperpigmentation [Recovered/Resolved]
  - Dermatitis acneiform [Recovered/Resolved]
  - Nausea [Recovered/Resolved]
  - Peripheral sensory neuropathy [Recovered/Resolved]
  - Paronychia [Recovered/Resolved]
  - Diarrhoea [Recovered/Resolved]
  - Hypomagnesaemia [Recovered/Resolved]
  - Hypoaesthesia oral [Recovered/Resolved]
  - Aspartate aminotransferase increased [Recovered/Resolved]
  - Fatigue [Recovered/Resolved]
  - Epistaxis [Recovered/Resolved]
  - White blood cell count decreased [Recovered/Resolved]
  - Decreased appetite [Recovered/Resolved]
  - Dry skin [Recovered/Resolved]
  - Stomatitis [Recovered/Resolved]

NARRATIVE: CASE EVENT DATE: 20170206
